FAERS Safety Report 22099502 (Version 1)
Quarter: 2023Q1

REPORT INFORMATION
  Report Type: Spontaneous
  Country: BE (occurrence: BE)
  Receive Date: 20230315
  Receipt Date: 20230315
  Transmission Date: 20230417
  Serious: Yes (Other)
  Sender: FDA-Public Use
  Company Number: None

PATIENT
  Age: 29 Year
  Sex: Male

DRUGS (3)
  1. BLEOMYCIN [Suspect]
     Active Substance: BLEOMYCIN SULFATE
     Indication: Germ cell neoplasm
     Route: 065
  2. ETOPOSIDE [Concomitant]
     Active Substance: ETOPOSIDE
     Route: 065
  3. CISPLATIN [Concomitant]
     Active Substance: CISPLATIN
     Route: 065

REACTIONS (4)
  - Pneumomediastinum [Unknown]
  - Pneumothorax spontaneous [Unknown]
  - Organising pneumonia [Unknown]
  - Pulmonary pneumatocele [Unknown]
